FAERS Safety Report 15651814 (Version 2)
Quarter: 2019Q1

REPORT INFORMATION
  Report Type: Report from Study
  Country: IN (occurrence: IN)
  Receive Date: 20181123
  Receipt Date: 20190212
  Transmission Date: 20190417
  Serious: Yes (Death, Hospitalization)
  Sender: FDA-Public Use
  Company Number: PHHY2018IN149677

PATIENT
  Age: 51 Year
  Sex: Male
  Weight: 55 kg

DRUGS (2)
  1. SPEXIB [Suspect]
     Active Substance: CERITINIB
     Indication: NON-SMALL CELL LUNG CANCER
     Dosage: 450 MG, QD
     Route: 048
     Dates: start: 20181025
  2. SPEXIB [Suspect]
     Active Substance: CERITINIB
     Dosage: 450 MG, QD
     Route: 048
     Dates: start: 20181101

REACTIONS (6)
  - Nausea [Unknown]
  - Malignant neoplasm progression [Fatal]
  - Vomiting [Not Recovered/Not Resolved]
  - Non-small cell lung cancer [Fatal]
  - Fungal infection [Recovering/Resolving]
  - Pyrexia [Unknown]

NARRATIVE: CASE EVENT DATE: 20181027
